FAERS Safety Report 14268652 (Version 3)
Quarter: 2018Q1

REPORT INFORMATION
  Report Type: Spontaneous
  Country: JP (occurrence: JP)
  Receive Date: 20171211
  Receipt Date: 20180102
  Transmission Date: 20180508
  Serious: Yes (Death)
  Sender: FDA-Public Use
  Company Number: JP-JNJFOC-20171211918

PATIENT
  Age: 77 Year
  Sex: Female

DRUGS (7)
  1. FEXOFENADINE HYDROCHLORIDE. [Concomitant]
     Active Substance: FEXOFENADINE HYDROCHLORIDE
     Indication: PRODUCT USED FOR UNKNOWN INDICATION
     Route: 048
     Dates: start: 20170917, end: 20170919
  2. RINDERON VG [Concomitant]
     Active Substance: BETAMETHASONE VALERATE\GENTAMICIN SULFATE
     Indication: PRODUCT USED FOR UNKNOWN INDICATION
     Route: 062
     Dates: start: 20170919, end: 20170926
  3. BETAMETHASONE W/CHLORPHENAMINE MALEATE [Concomitant]
     Active Substance: BETAMETHASONE\CHLORPHENIRAMINE MALEATE
     Indication: PRODUCT USED FOR UNKNOWN INDICATION
     Route: 048
     Dates: start: 20170919, end: 20170928
  4. BETAMETHASONE W/CHLORPHENAMINE MALEATE [Concomitant]
     Active Substance: BETAMETHASONE\CHLORPHENIRAMINE MALEATE
     Indication: PRODUCT USED FOR UNKNOWN INDICATION
     Route: 048
     Dates: start: 20170929, end: 20171005
  5. TRAMAL [Suspect]
     Active Substance: TRAMADOL
     Indication: CANCER PAIN
     Route: 048
     Dates: start: 20170915, end: 20171002
  6. MOSAPRIDE CITRATE [Suspect]
     Active Substance: MOSAPRIDE CITRATE
     Indication: NAUSEA
     Route: 048
     Dates: start: 20170915, end: 20171002
  7. FEXOFENADINE HYDROCHLORIDE. [Concomitant]
     Active Substance: FEXOFENADINE HYDROCHLORIDE
     Indication: PRODUCT USED FOR UNKNOWN INDICATION
     Route: 048
     Dates: start: 20170913, end: 20170913

REACTIONS (1)
  - Rash pruritic [Not Recovered/Not Resolved]

NARRATIVE: CASE EVENT DATE: 20170926
